FAERS Safety Report 14992782 (Version 1)
Quarter: 2018Q2

REPORT INFORMATION
  Report Type: Report from Study
  Country: DE (occurrence: DE)
  Receive Date: 20180609
  Receipt Date: 20180609
  Transmission Date: 20180711
  Serious: Yes (Hospitalization)
  Sender: FDA-Public Use
  Company Number: DE-TEVA-2018-DE-902340

PATIENT
  Age: 75 Year
  Sex: Female
  Weight: 62 kg

DRUGS (10)
  1. FOLINIC ACID [Suspect]
     Active Substance: LEUCOVORIN
     Dosage: 400 MG/M2 DAILY; DAILY DOSE: 400 MG/M2 MILLIGRAM(S)/SQ. METER EVERY 2 WEEKS
     Route: 042
     Dates: start: 20170829
  2. OXALIPLATIN. [Suspect]
     Active Substance: OXALIPLATIN
     Indication: COLORECTAL CANCER METASTATIC
     Dosage: 85 MG/M2 DAILY; DAILY DOSE: 85 MG/M2 MILLIGRAM(S)/SQ. METER EVERY 2 WEEKS
     Route: 042
     Dates: start: 20170526, end: 20170630
  3. FLUOROURACIL. [Suspect]
     Active Substance: FLUOROURACIL
     Dosage: 7 DAILY DOSE: 2800 MG/M2 MILLIGRAM(S)/SQ. METER EVERY 2 WEEKS
     Dates: start: 20170526, end: 20170630
  4. ERBITUX [Suspect]
     Active Substance: CETUXIMAB
     Indication: COLORECTAL CANCER METASTATIC
     Dosage: 500 MG/M2 DAILY; DAILY DOSE: 500 MG/M2 MILLIGRAM(S)/SQ. METER EVERY 2 WEEKS
     Route: 042
     Dates: start: 20170612, end: 20170829
  5. FOLINIC ACID [Suspect]
     Active Substance: LEUCOVORIN
     Indication: COLORECTAL CANCER METASTATIC
     Dosage: 150 MG/M2 DAILY; DAILY DOSE: 150 MG/M2 MILLIGRAM(S)/SQ. METER EVERY 2 WEEKS
     Route: 042
     Dates: start: 2017, end: 2017
  6. FLUOROURACIL. [Suspect]
     Active Substance: FLUOROURACIL
     Dosage: 2800 MG/M2 DAILY; DAILY DOSE: 2800 MG/M2 MILLIGRAM(S)/SQ. METER EVERY 2 WEEKS
     Route: 042
     Dates: start: 20170829
  7. FLUOROURACIL. [Suspect]
     Active Substance: FLUOROURACIL
     Indication: COLORECTAL CANCER METASTATIC
     Dosage: 2100 MG/M2 DAILY; DAILY DOSE: 2100 MG/M2 MILLIGRAM(S)/SQ. METER EVERY 2 WEEKS
     Route: 042
     Dates: start: 2017, end: 2017
  8. OXALIPLATIN. [Suspect]
     Active Substance: OXALIPLATIN
     Dosage: 63.75 MG/M2 DAILY;  DAILY DOSE: 63.75 MG/M2 MILLIGRAM(S)/SQ. METER EVERY 2 WEEKS
     Route: 042
     Dates: start: 2017, end: 2017
  9. IRINOTECAN [Suspect]
     Active Substance: IRINOTECAN
     Indication: COLORECTAL CANCER METASTATIC
     Dosage: DAILY DOSE: 180 MG/M2 MILLIGRAM(S)/SQ. METER EVERY 2 WEEKS
     Route: 042
     Dates: start: 20170829
  10. FOLINIC ACID [Suspect]
     Active Substance: LEUCOVORIN
     Dosage: 200 MG/M2 DAILY; DAILY DOSE: 200 MG/M2 MILLIGRAM(S)/SQ. METER EVERY 2 WEEKS
     Dates: start: 20170526, end: 20170630

REACTIONS (4)
  - Ileus [Recovered/Resolved]
  - Haemolysis [Not Recovered/Not Resolved]
  - Diarrhoea [Recovered/Resolved]
  - Off label use [Unknown]

NARRATIVE: CASE EVENT DATE: 20170905
